FAERS Safety Report 9371959 (Version 1)
Quarter: 2013Q2

REPORT INFORMATION
  Report Type: Spontaneous
  Country: MX (occurrence: None)
  Receive Date: 20130618
  Receipt Date: 20130618
  Transmission Date: 20140414
  Serious: Yes (Other)
  Sender: FDA-Public Use
  Company Number: 2013036485

PATIENT
  Age: 58 Year
  Sex: Female

DRUGS (2)
  1. IVIG [Suspect]
     Indication: THROMBOCYTOPENIA
  2. IVIG [Suspect]
     Indication: EVANS SYNDROME

REACTIONS (1)
  - Drug ineffective for unapproved indication [None]
